FAERS Safety Report 16812742 (Version 3)
Quarter: 2019Q4

REPORT INFORMATION
  Report Type: Report from Study
  Country: AU (occurrence: AU)
  Receive Date: 20190916
  Receipt Date: 20191112
  Transmission Date: 20200122
  Serious: Yes (Death, Hospitalization, Other)
  Sender: FDA-Public Use
  Company Number: AU-INCYTE CORPORATION-2019IN009188

PATIENT

DRUGS (14)
  1. PREDNISOLONE. [Concomitant]
     Active Substance: PREDNISOLONE
     Dosage: 20 MG, QD
     Route: 065
  2. FUROSEMIDE. [Concomitant]
     Active Substance: FUROSEMIDE
     Indication: OEDEMA
     Dosage: 40 MG, DAILY
     Route: 048
     Dates: start: 2018
  3. POSACONAZOLE [Concomitant]
     Active Substance: POSACONAZOLE
     Indication: ANTIFUNGAL PROPHYLAXIS
     Dosage: 100 MG, DAILY
     Route: 048
     Dates: start: 2018
  4. METHYLPREDNISOLONE. [Suspect]
     Active Substance: METHYLPREDNISOLONE
     Indication: PRODUCT USED FOR UNKNOWN INDICATION
     Dosage: 150 MG, QD
     Route: 042
     Dates: start: 20190831
  5. PREDNISOLONE. [Concomitant]
     Active Substance: PREDNISOLONE
     Indication: GRAFT VERSUS HOST DISEASE
     Dosage: 20-140 MG
     Route: 048
     Dates: start: 201802
  6. METOPROLOL. [Concomitant]
     Active Substance: METOPROLOL
     Indication: ATRIAL FIBRILLATION
     Dosage: 50 MG, BID
     Route: 048
     Dates: start: 201906
  7. PREDNISOLONE. [Concomitant]
     Active Substance: PREDNISOLONE
     Dosage: 50 MG, QD
     Route: 065
  8. ROXITHROMYCIN [Concomitant]
     Active Substance: ROXITHROMYCIN
     Indication: PROPHYLAXIS
     Dosage: 150 MG, DAILY
     Route: 048
     Dates: start: 2016
  9. VALACICLOVIR [Concomitant]
     Active Substance: VALACYCLOVIR HYDROCHLORIDE
     Indication: PROPHYLAXIS
     Dosage: 500 MG, DAILY
     Route: 048
     Dates: start: 2016
  10. URSODEOXYCHOLIC ACID [Concomitant]
     Active Substance: URSODIOL
     Indication: GRAFT VERSUS HOST DISEASE IN LIVER
     Dosage: 500 MG, BID
     Route: 048
     Dates: start: 201906
  11. AMIODARONE [Concomitant]
     Active Substance: AMIODARONE
     Indication: PRODUCT USED FOR UNKNOWN INDICATION
     Dosage: UNK
     Route: 065
  12. JAKAVI [Suspect]
     Active Substance: RUXOLITINIB
     Indication: GRAFT VERSUS HOST DISEASE
     Dosage: 5 MILLIGRAM, BID
     Route: 048
     Dates: start: 20190423, end: 20190827
  13. ACETAMINOPHEN. [Concomitant]
     Active Substance: ACETAMINOPHEN
     Indication: PRODUCT USED FOR UNKNOWN INDICATION
     Route: 065
  14. BACTRIM DS [Concomitant]
     Active Substance: SULFAMETHOXAZOLE\TRIMETHOPRIM
     Indication: PROPHYLAXIS
     Dosage: 0.5 DF, QOD (MON, WED AND FRI)
     Route: 048

REACTIONS (11)
  - Endothelial dysfunction [Fatal]
  - Septic shock [Fatal]
  - Anaemia [Unknown]
  - Thrombocytopenia [Unknown]
  - Renal impairment [Unknown]
  - Pericardial effusion [Fatal]
  - Haemophagocytic lymphohistiocytosis [Fatal]
  - Haemosiderosis [Unknown]
  - Fasciitis [Unknown]
  - Multiple organ dysfunction syndrome [Fatal]
  - Jaundice [Unknown]

NARRATIVE: CASE EVENT DATE: 20190812
